FAERS Safety Report 24915800 (Version 2)
Quarter: 2025Q1

REPORT INFORMATION
  Report Type: Spontaneous
  Country: US (occurrence: US)
  Receive Date: 20250203
  Receipt Date: 20250203
  Transmission Date: 20250409
  Serious: No
  Sender: BRISTOL-MYERS SQUIBB COMPANY
  Company Number: US-BRISTOL-MYERS SQUIBB COMPANY-2025-015904

PATIENT
  Age: 33 Year
  Sex: Female
  Weight: 79.38 kg

DRUGS (2)
  1. COBENFY [Suspect]
     Active Substance: TROSPIUM CHLORIDE\XANOMELINE
     Indication: Schizophrenia
     Dosage: DOSE : 50MG/20MG | 100MG/20 MG;     FREQ : TWICE DAILY
     Dates: start: 20250129
  2. CARVEDILOL [Concomitant]
     Active Substance: CARVEDILOL
     Indication: Product used for unknown indication
     Dosage: 12.5

REACTIONS (4)
  - Secretion discharge [Unknown]
  - Respiratory tract congestion [Unknown]
  - Wrong technique in product usage process [Unknown]
  - Hiccups [Unknown]

NARRATIVE: CASE EVENT DATE: 20250101
